FAERS Safety Report 4486789-4 (Version None)
Quarter: 2004Q4

REPORT INFORMATION
  Report Type: 
  Country: None (occurrence: None)
  Receive Date: 20041027
  Receipt Date: 20041019
  Transmission Date: 20050328
  Serious: Yes (Other)
  Sender: FDA-Public Use
  Company Number: DE-MERCK-0410DEU00575

PATIENT
  Age: 77 Year
  Sex: Female
  Weight: 80 kg

DRUGS (4)
  1. VIOXX [Suspect]
     Route: 048
     Dates: start: 20040317, end: 20040410
  2. VIOXX [Suspect]
     Route: 048
     Dates: start: 20040411
  3. ESOMEPRAZOLE MAGNESIUM [Concomitant]
     Route: 065
  4. ENALAPRIL MALEATE [Concomitant]
     Route: 048

REACTIONS (1)
  - CEREBROVASCULAR ACCIDENT [None]
